FAERS Safety Report 6039947-1 (Version None)
Quarter: 2009Q1

REPORT INFORMATION
  Report Type: 
  Country: None (occurrence: None)
  Receive Date: 20090116
  Receipt Date: 20071112
  Transmission Date: 20090719
  Serious: No
  Sender: FDA-Public Use
  Company Number: US-BRISTOL-MYERS SQUIBB COMPANY-13955158

PATIENT
  Age: 39 Year
  Sex: Female

DRUGS (3)
  1. ABILIFY [Suspect]
     Indication: PARANOIA
     Route: 048
     Dates: start: 20070906, end: 20071018
  2. LEXAPRO [Concomitant]
  3. RESTORIL [Concomitant]

REACTIONS (1)
  - AKATHISIA [None]
